FAERS Safety Report 7944429-3 (Version None)
Quarter: 2011Q4

REPORT INFORMATION
  Report Type: 
  Country: None (occurrence: None)
  Receive Date: 20111129
  Receipt Date: 20111117
  Transmission Date: 20120403
  Serious: No
  Sender: FDA-Public Use
  Company Number: US-BIOGENIDEC-2011BI044673

PATIENT
  Age: 42 Year
  Sex: Female

DRUGS (6)
  1. ACETAMINOPHEN [Concomitant]
     Indication: PREMEDICATION
     Route: 048
     Dates: start: 20010201
  2. AVONEX [Suspect]
     Indication: MULTIPLE SCLEROSIS
     Route: 030
     Dates: start: 20020201
  3. AVONEX [Suspect]
     Route: 030
     Dates: start: 20030101, end: 20040101
  4. AVONEX [Suspect]
     Route: 030
     Dates: start: 20030101, end: 20030101
  5. AVONEX [Suspect]
     Route: 030
     Dates: start: 20030101, end: 20030101
  6. AVONEX [Suspect]
     Route: 030
     Dates: start: 20050101

REACTIONS (9)
  - INFLUENZA LIKE ILLNESS [None]
  - TINNITUS [None]
  - VISUAL IMPAIRMENT [None]
  - HEADACHE [None]
  - BLOOD PRESSURE INCREASED [None]
  - LOGORRHOEA [None]
  - MUSCLE TIGHTNESS [None]
  - MOOD ALTERED [None]
  - IRRITABILITY [None]
